FAERS Safety Report 7510497-6 (Version None)
Quarter: 2011Q2

REPORT INFORMATION
  Report Type: 
  Country: None (occurrence: None)
  Receive Date: 20110529
  Receipt Date: 20110524
  Transmission Date: 20111010
  Serious: Yes (Death)
  Sender: FDA-Public Use
  Company Number: DE-BRISTOL-MYERS SQUIBB COMPANY-15674112

PATIENT
  Age: 48 Year
  Sex: Male
  Weight: 74 kg

DRUGS (7)
  1. PANTOPRAZOLE [Concomitant]
  2. FLUOROURACIL [Suspect]
     Indication: HEAD AND NECK CANCER
     Dosage: MOST RECENT DOSE ON 25MAR2011.
     Route: 042
     Dates: start: 20110204, end: 20110325
  3. CISPLATIN [Suspect]
     Indication: HEAD AND NECK CANCER
     Dosage: MOST RECENT DOSE ON 25MAR2011.
     Route: 042
     Dates: start: 20110204, end: 20110325
  4. NOVALGIN [Concomitant]
     Dosage: 1 DF=20 UNITS NOS
  5. IBUPROFEN [Concomitant]
  6. CETUXIMAB [Suspect]
     Indication: HEAD AND NECK CANCER
     Dosage: CETUXIMAB  IV INFUSION.MOST RECENT DOSE ON 25MAR2011.
     Route: 042
     Dates: start: 20110204, end: 20110325
  7. DOCETAXEL [Suspect]
     Indication: HEAD AND NECK CANCER
     Dosage: DOCETAXEL IV INFUSION,MOST RECENT DOSE ON 25MAR2011.
     Route: 042
     Dates: start: 20110204, end: 20110325

REACTIONS (1)
  - SEPSIS [None]
